FAERS Safety Report 18724460 (Version 1)
Quarter: 2021Q1

REPORT INFORMATION
  Report Type: Spontaneous
  Country: US (occurrence: US)
  Receive Date: 20210108
  Receipt Date: 20210108
  Transmission Date: 20210419
  Serious: No
  Sender: FDA-Public Use
  Company Number: None

PATIENT
  Age: 89 Year
  Sex: Male
  Weight: 64 kg

DRUGS (1)
  1. MEGESTROL (MEGESTROL ACETATE 200MG/5ML SUSP,ORAL [Suspect]
     Active Substance: MEGESTROL
     Route: 048
     Dates: start: 20170928, end: 20201207

REACTIONS (2)
  - Pulmonary embolism [None]
  - Deep vein thrombosis [None]

NARRATIVE: CASE EVENT DATE: 20201207
